FAERS Safety Report 7971319-2 (Version None)
Quarter: 2011Q4

REPORT INFORMATION
  Report Type: 
  Country: None (occurrence: None)
  Receive Date: 20111212
  Receipt Date: 20111202
  Transmission Date: 20120403
  Serious: Yes (Hospitalization)
  Sender: FDA-Public Use
  Company Number: PHHY2011JP104409

PATIENT
  Age: 48 Year
  Sex: Male

DRUGS (3)
  1. CYCLOSPORINE [Suspect]
     Indication: INTERSTITIAL LUNG DISEASE
     Dosage: 150 MG
     Route: 048
     Dates: start: 20100101, end: 20100101
  2. PREDNISOLONE [Concomitant]
     Indication: INTERSTITIAL LUNG DISEASE
     Dosage: 80 MG
     Route: 048
     Dates: start: 20100101
  3. PREDNISOLONE [Concomitant]
     Dosage: 40 MG
     Route: 048
     Dates: start: 20100101

REACTIONS (1)
  - MYALGIA [None]
